FAERS Safety Report 16970273 (Version 1)
Quarter: 2019Q4

REPORT INFORMATION
  Report Type: Spontaneous
  Country: ES (occurrence: ES)
  Receive Date: 20191029
  Receipt Date: 20191029
  Transmission Date: 20200122
  Serious: Yes (Other)
  Sender: FDA-Public Use
  Company Number: ES-JNJFOC-20191031745

PATIENT
  Age: 60 Year
  Sex: Male
  Weight: 126 kg

DRUGS (7)
  1. CANAGLIFLOZIN/METFORMIN [Suspect]
     Active Substance: CANAGLIFLOZIN\METFORMIN HYDROCHLORIDE
     Indication: DIABETES MELLITUS
     Dosage: 1 TABLET EVERY 12 HOURS
     Route: 048
     Dates: start: 20171228
  2. ACETYLSALICYLIC ACID [Concomitant]
     Active Substance: ASPIRIN
     Dosage: 1 COMPRIMIDO CADA D A
     Route: 048
     Dates: start: 20111129
  3. BISOPROLOL [Concomitant]
     Active Substance: BISOPROLOL
     Dosage: 1 COMPRIMIDO CADA D A
     Route: 048
     Dates: start: 20180912
  4. SEVIKAR HCT [Concomitant]
     Active Substance: AMLODIPINE BESYLATE\HYDROCHLOROTHIAZIDE\OLMESARTAN MEDOXOMIL
     Dosage: 1 TABLET PER DAY
     Route: 048
     Dates: start: 20151027
  5. TRESIBA [Concomitant]
     Active Substance: INSULIN DEGLUDEC
     Dosage: 120UI AT BREAKFAST
     Route: 058
     Dates: start: 20181017
  6. TRULICITY [Concomitant]
     Active Substance: DULAGLUTIDE
     Dosage: 1 CARTUCHO/PLUMA CADA 7 D AS
     Route: 058
     Dates: start: 20181017
  7. SIMVASTATINA [Concomitant]
     Active Substance: SIMVASTATIN
     Dosage: 1 COMPRIMIDO CADA D A
     Route: 048
     Dates: start: 20180905

REACTIONS (1)
  - Cellulitis [Recovered/Resolved]

NARRATIVE: CASE EVENT DATE: 20190913
